FAERS Safety Report 5213113-1 (Version None)
Quarter: 2007Q1

REPORT INFORMATION
  Report Type: 
  Country: None (occurrence: None)
  Receive Date: 20070119
  Receipt Date: 20070109
  Transmission Date: 20070707
  Serious: Yes (Hospitalization)
  Sender: FDA-Public Use
  Company Number: FR-ROCHE-478024

PATIENT
  Age: 58 Year
  Sex: Male
  Weight: 81 kg

DRUGS (3)
  1. LARIAM [Suspect]
     Indication: MALARIA PROPHYLAXIS
     Route: 048
     Dates: start: 20050615, end: 20050615
  2. LARIAM [Suspect]
     Route: 048
     Dates: end: 20061115
  3. TENSTATEN [Concomitant]
     Route: 048

REACTIONS (7)
  - ANISOCYTOSIS [None]
  - BLOOD POTASSIUM DECREASED [None]
  - DIARRHOEA [None]
  - DIARRHOEA INFECTIOUS [None]
  - MICROCYTIC ANAEMIA [None]
  - POIKILOCYTOSIS [None]
  - RECTAL HAEMORRHAGE [None]
